FAERS Safety Report 9176399 (Version 2)
Quarter: 2013Q2

REPORT INFORMATION
  Report Type: Spontaneous
  Country: US (occurrence: US)
  Receive Date: 20130321
  Receipt Date: 20130515
  Transmission Date: 20140414
  Serious: No
  Sender: FDA-Public Use
  Company Number: US-009507513-1303USA005970

PATIENT
  Age: 51 Year
  Sex: Male

DRUGS (8)
  1. VICTRELIS [Suspect]
     Indication: HEPATITIS C
     Dosage: 800 MG, TID
     Route: 048
     Dates: start: 20130225
  2. PEGASYS [Suspect]
  3. RIBASPHERE [Suspect]
  4. METOPROLOL [Concomitant]
  5. GLYBURIDE [Concomitant]
  6. ONGLYZA [Concomitant]
  7. AMLODIPINE BESYLATE [Concomitant]
  8. IBUPROFEN [Concomitant]

REACTIONS (3)
  - Hypotension [Unknown]
  - Dizziness [Unknown]
  - Dyspnoea [Unknown]
